FAERS Safety Report 18407220 (Version 2)
Quarter: 2020Q4

REPORT INFORMATION
  Report Type: Spontaneous
  Country: JP (occurrence: JP)
  Receive Date: 20201020
  Receipt Date: 20201030
  Transmission Date: 20210114
  Serious: No
  Sender: FDA-Public Use
  Company Number: JP-PFIZER INC-2020336147

PATIENT
  Age: 7 Year

DRUGS (1)
  1. GENOTROPIN GOQUICK 5.3MG [Suspect]
     Active Substance: SOMATROPIN
     Dosage: 4.2 MG, WEEKLY
     Route: 058

REACTIONS (3)
  - Wrong technique in device usage process [Unknown]
  - Incorrect dose administered by device [Unknown]
  - Device information output issue [Unknown]
